FAERS Safety Report 16149625 (Version 1)
Quarter: 2019Q2

REPORT INFORMATION
  Report Type: Spontaneous
  Country: US (occurrence: US)
  Receive Date: 20190227
  Receipt Date: 20190227
  Transmission Date: 20190711
  Serious: No
  Sender: FDA-Public Use
  Company Number: None

PATIENT
  Age: 52 Year
  Sex: Female
  Weight: 77.57 kg

DRUGS (4)
  1. ENBREL [Suspect]
     Active Substance: ETANERCEPT
     Indication: OSTEOPOROSIS
  2. ENBREL [Suspect]
     Active Substance: ETANERCEPT
     Indication: RHEUMATOID ARTHRITIS
  3. ENBREL [Suspect]
     Active Substance: ETANERCEPT
     Indication: OSTEOPOROSIS
     Dosage: INJECT 50MG SUBCUTANEOUSLY ONCE WEEKLY USING THE AUTO TOUCH DEVICE AS DIRECTED
     Route: 058
     Dates: start: 201811
  4. ENBREL [Suspect]
     Active Substance: ETANERCEPT
     Indication: BONE DISORDER

REACTIONS (1)
  - Dry mouth [None]
